FAERS Safety Report 8477529 (Version 2)
Quarter: 2013Q1

REPORT INFORMATION
  Report Type: Spontaneous
  Country: DE (occurrence: None)
  Receive Date: 20120316
  Receipt Date: 20130122
  Transmission Date: 20140127
  Serious: No
  Sender: FDA-Public Use
  Company Number: ACO_29656_2012

PATIENT
  Age: 55 Year
  Sex: Female

DRUGS (7)
  1. DALFAMPRIDINE [Suspect]
     Indication: GAIT SPASTIC
     Dosage: 10 MG, BID, ORAL
     Route: 048
     Dates: start: 20111104
  2. COPAXONE [Concomitant]
  3. BACLOFEN [Concomitant]
  4. FLUOXETINE HCL [Concomitant]
  5. URIVESC (TROSPIUM CHLORIDE) [Concomitant]
  6. EMSELEX /01760401/ (DARIFENACIN) [Concomitant]
  7. MICTONORM (PROPIVERINE HYDROCHLORIDE) [Concomitant]

REACTIONS (1)
  - Skin discolouration [None]
